FAERS Safety Report 21016610 (Version 1)
Quarter: 2022Q2

REPORT INFORMATION
  Report Type: Spontaneous
  Country: ES (occurrence: ES)
  Receive Date: 20220628
  Receipt Date: 20220628
  Transmission Date: 20220720
  Serious: Yes (Hospitalization)
  Sender: FDA-Public Use
  Company Number: None

PATIENT
  Age: 86 Year
  Sex: Male

DRUGS (7)
  1. CANDESARTAN [Suspect]
     Active Substance: CANDESARTAN
     Indication: Hypertension
     Dosage: 8 MILLIGRAM (8.0 MG C/24 H)
     Route: 048
     Dates: start: 20210126, end: 20210314
  2. FERROUS SULFATE [Concomitant]
     Active Substance: FERROUS SULFATE
     Indication: Anaemia
     Dosage: 105 MILLIGRAM (105.0 MG C/24 H AM)
     Route: 048
     Dates: start: 20160616
  3. SINTROM [Concomitant]
     Active Substance: ACENOCOUMAROL
     Indication: Atrial fibrillation
     Dosage: 3 MILLIGRAM (3.0 MG C/24 H)
     Route: 048
     Dates: start: 20120217
  4. LORAZEPAM [Concomitant]
     Active Substance: LORAZEPAM
     Indication: Anxiety
     Dosage: 1 MILLIGRAM (1.0 MG C/12 H )
     Route: 048
     Dates: start: 20171117
  5. PARACETAMOL CINFA [Concomitant]
     Indication: Rheumatoid arthritis
     Dosage: 650 MILLIGRAM (650.0 MG DECOCE)
     Route: 048
     Dates: start: 20191125
  6. Omeprazol normon [Concomitant]
     Indication: Product used for unknown indication
     Dosage: 40 MILLIGRAM (40.0 MG A-DE)
     Route: 048
     Dates: start: 20170301
  7. METHYLPREDNISOLONE [Concomitant]
     Active Substance: METHYLPREDNISOLONE
     Indication: Rheumatoid arthritis
     Dosage: 4 MILLIGRAM (4.0 MG DE)
     Route: 048
     Dates: start: 20110624

REACTIONS (1)
  - Syncope [Recovered/Resolved]

NARRATIVE: CASE EVENT DATE: 20210314
